FAERS Safety Report 5310005-4 (Version None)
Quarter: 2007Q2

REPORT INFORMATION
  Report Type: 
  Country: None (occurrence: None)
  Receive Date: 20070427
  Receipt Date: 20070417
  Transmission Date: 20071010
  Serious: Yes (Hospitalization, Disabling)
  Sender: FDA-Public Use
  Company Number: US-ROCHE-231499

PATIENT
  Age: 14 Year
  Sex: Male

DRUGS (4)
  1. ACCUTANE [Suspect]
     Indication: ACNE
     Route: 048
     Dates: start: 19990104, end: 19990125
  2. ACCUTANE [Suspect]
     Route: 048
     Dates: start: 19990126, end: 19990419
  3. ACCUTANE [Suspect]
     Route: 048
     Dates: start: 19990420, end: 19990715
  4. ZANTAC [Concomitant]
     Route: 048

REACTIONS (19)
  - ABDOMINAL PAIN [None]
  - ABDOMINAL PAIN UPPER [None]
  - ABNORMAL FAECES [None]
  - ADJUSTMENT DISORDER [None]
  - ANAEMIA [None]
  - CROHN'S DISEASE [None]
  - DEPRESSION [None]
  - DERMATITIS [None]
  - DRY EYE [None]
  - EPISTAXIS [None]
  - EPSTEIN-BARR VIRUS INFECTION [None]
  - FATIGUE [None]
  - GASTROENTERITIS [None]
  - INFLAMMATORY BOWEL DISEASE [None]
  - MALLORY-WEISS SYNDROME [None]
  - PYREXIA [None]
  - SMALL INTESTINAL OBSTRUCTION [None]
  - WEIGHT DECREASED [None]
  - WEIGHT INCREASED [None]
